FAERS Safety Report 10468224 (Version 1)
Quarter: 2014Q3

REPORT INFORMATION
  Report Type: Spontaneous
  Country: US (occurrence: US)
  Receive Date: 20140922
  Receipt Date: 20140922
  Transmission Date: 20150326
  Serious: Yes (Death, Hospitalization)
  Sender: FDA-Public Use
  Company Number: US-B.I. PHARMACEUTICALS,INC./RIDGEFIELD-2014-BI-44818BP

PATIENT
  Age: 83 Year
  Sex: Female

DRUGS (5)
  1. AFRIN [Concomitant]
     Active Substance: OXYMETAZOLINE
     Indication: PRODUCT USED FOR UNKNOWN INDICATION
     Dosage: FORMULATION: NASAL SPRAY
     Route: 065
  2. PROTONIX [Concomitant]
     Active Substance: PANTOPRAZOLE SODIUM
     Indication: PRODUCT USED FOR UNKNOWN INDICATION
     Route: 065
  3. SYNTHROID [Concomitant]
     Active Substance: LEVOTHYROXINE SODIUM
     Indication: PRODUCT USED FOR UNKNOWN INDICATION
     Route: 065
  4. PRADAXA [Suspect]
     Active Substance: DABIGATRAN ETEXILATE MESYLATE
     Indication: DEEP VEIN THROMBOSIS
     Dosage: 300 MG
     Route: 048
     Dates: start: 2014, end: 201404
  5. INSULIN [Concomitant]
     Active Substance: INSULIN NOS
     Indication: PRODUCT USED FOR UNKNOWN INDICATION
     Route: 065

REACTIONS (15)
  - Enterovesical fistula [Unknown]
  - Renal failure chronic [Recovered/Resolved]
  - Diarrhoea [Recovered/Resolved]
  - Coagulopathy [Unknown]
  - Urinary tract infection enterococcal [Unknown]
  - Urinary tract infection [Unknown]
  - Metabolic acidosis [Unknown]
  - Epistaxis [Recovered/Resolved]
  - Haematuria [Unknown]
  - Dysphagia [Unknown]
  - Pneumonia [Unknown]
  - Gastrointestinal haemorrhage [Fatal]
  - Atelectasis [Unknown]
  - Hyperkalaemia [Unknown]
  - Renal failure acute [Recovered/Resolved]

NARRATIVE: CASE EVENT DATE: 201404
